FAERS Safety Report 25104824 (Version 1)
Quarter: 2025Q1

REPORT INFORMATION
  Report Type: Spontaneous
  Country: US (occurrence: None)
  Receive Date: 20250320
  Receipt Date: 20250320
  Transmission Date: 20250409
  Serious: No
  Sender: FDA-CTU
  Company Number: None

PATIENT
  Age: 81 Year
  Sex: Female
  Weight: 56.7 kg

DRUGS (11)
  1. LEVOFLOXACIN [Suspect]
     Active Substance: LEVOFLOXACIN
     Indication: Pneumonia
     Dosage: 1 PILL A DAY    MOUTH
     Route: 048
     Dates: start: 20250205, end: 20250207
  2. LOSARTAN [Concomitant]
     Active Substance: LOSARTAN
  3. METOPROLOL [Concomitant]
     Active Substance: METOPROLOL
  4. Hydroxychoroguine [Concomitant]
  5. Fhurosemide [Concomitant]
  6. AMLODIPINE [Concomitant]
     Active Substance: AMLODIPINE BESYLATE
  7. SIMVASTATIN [Concomitant]
     Active Substance: SIMVASTATIN
  8. PROAIR HFA [Concomitant]
     Active Substance: ALBUTEROL SULFATE
  9. OXYGEN [Concomitant]
     Active Substance: OXYGEN
  10. FOLATE SODIUM [Concomitant]
     Active Substance: FOLATE SODIUM
  11. NM-6603 [Concomitant]
     Active Substance: NM-6603

REACTIONS (5)
  - Gait disturbance [None]
  - Pain in extremity [None]
  - Pain in extremity [None]
  - Sleep disorder [None]
  - Balance disorder [None]

NARRATIVE: CASE EVENT DATE: 20250207
